FAERS Safety Report 8085737-8 (Version None)
Quarter: 2012Q1

REPORT INFORMATION
  Report Type: 
  Country: None (occurrence: None)
  Receive Date: 20120128
  Receipt Date: 20110602
  Transmission Date: 20120608
  Serious: No
  Sender: FDA-Public Use
  Company Number: US-ABBOTT-11P-163-0730087-00

PATIENT
  Age: 67 Year
  Sex: Male

DRUGS (16)
  1. IMIPRAMINE HCL [Concomitant]
     Indication: DEPRESSION
     Dates: start: 20010101
  2. AMLODIPINE [Concomitant]
     Indication: HYPERTENSION
     Dates: start: 20060101
  3. SULFADIAZINE [Concomitant]
     Indication: PSORIASIS
     Dosage: TWO TABLETS
     Dates: start: 20110501
  4. NABUMETONE [Concomitant]
     Indication: ANKYLOSING SPONDYLITIS
  5. IBUPROFEN [Concomitant]
     Indication: PAIN
     Dates: start: 20090101
  6. HUMIRA [Suspect]
     Indication: ANKYLOSING SPONDYLITIS
     Dates: start: 20070101
  7. AMILORIDE HYDROCHLORIDE [Concomitant]
     Indication: HYPERTENSION
     Dates: start: 20101201
  8. POTASSIUM SPARING DIURETIC [Concomitant]
     Indication: PRODUCT USED FOR UNKNOWN INDICATION
     Dates: start: 20101201
  9. AMLODIPINE [Concomitant]
     Indication: ANGINA PECTORIS
  10. SIMVASTATIN [Concomitant]
     Indication: BLOOD TRIGLYCERIDES INCREASED
  11. LOVAZA [Concomitant]
     Indication: PROPHYLAXIS
     Dosage: 1200/600 MG PILLS
  12. METFFORMIN HYDROCHLORIDE [Concomitant]
     Indication: DIABETES MELLITUS
     Dosage: AT NIGHT
     Dates: start: 20110301
  13. HUMIRA [Suspect]
     Route: 058
     Dates: start: 20110518
  14. SIMVASTATIN [Concomitant]
     Indication: BLOOD CHOLESTEROL INCREASED
     Dosage: NIGHT
     Dates: start: 20060101
  15. NABUMETONE [Concomitant]
     Indication: RHEUMATOID ARTHRITIS
     Dates: start: 20010101
  16. HYDROCODONE BITARTRATE AND ACETAMINOPHEN [Concomitant]
     Indication: ANKYLOSING SPONDYLITIS
     Dosage: 1 EVERY 4-6 HOURS 5/500 MG
     Dates: start: 20060101

REACTIONS (7)
  - GOUT [None]
  - SPINAL OSTEOARTHRITIS [None]
  - EYE SWELLING [None]
  - JOINT WARMTH [None]
  - PERIORBITAL HAEMATOMA [None]
  - ERYTHEMA [None]
  - JOINT SWELLING [None]
